FAERS Safety Report 7685596-9 (Version None)
Quarter: 2011Q3

REPORT INFORMATION
  Report Type: 
  Country: None (occurrence: None)
  Receive Date: 20110816
  Receipt Date: 20110808
  Transmission Date: 20111222
  Serious: Yes (Life-Threatening, Hospitalization, Other)
  Sender: FDA-Public Use
  Company Number: US-PFIZER INC-2011182210

PATIENT
  Sex: Female

DRUGS (6)
  1. HYDROCHLOROTHIAZIDE AND LISINOPRIL [Suspect]
  2. CELEBREX [Suspect]
  3. METFORMIN HCL [Suspect]
     Indication: TYPE 2 DIABETES MELLITUS
     Dosage: 2000 MG, UNK
  4. ACETYLSALICYLIC ACID [Concomitant]
  5. BLINDED THERAPY [Suspect]
     Indication: TYPE 2 DIABETES MELLITUS
     Dosage: UNK
     Dates: start: 20100824
  6. LANTUS [Suspect]
     Indication: TYPE 2 DIABETES MELLITUS
     Dosage: 30 IU, UNK

REACTIONS (2)
  - UROSEPSIS [None]
  - RENAL FAILURE ACUTE [None]
